FAERS Safety Report 11031853 (Version 5)
Quarter: 2016Q4

REPORT INFORMATION
  Report Type: Spontaneous
  Country: US (occurrence: US)
  Receive Date: 20150415
  Receipt Date: 20161227
  Transmission Date: 20170206
  Serious: Yes (Other)
  Sender: FDA-Public Use
  Company Number: US-BAYER-2015-103804

PATIENT
  Age: 56 Year
  Sex: Female
  Weight: 101.59 kg

DRUGS (12)
  1. GABAPENTIN. [Concomitant]
     Active Substance: GABAPENTIN
  2. AVELOX [Suspect]
     Active Substance: MOXIFLOXACIN HYDROCHLORIDE
     Dosage: 400 MG, UNK
     Route: 048
     Dates: start: 20101209
  3. CIPROFLOXACIN. [Suspect]
     Active Substance: CIPROFLOXACIN
     Dosage: 500 MG, UNK
     Route: 048
     Dates: start: 20140126, end: 20150105
  4. BUPRENORPHINE. [Concomitant]
     Active Substance: BUPRENORPHINE
  5. PREDNISONE. [Concomitant]
     Active Substance: PREDNISONE
     Dosage: UNK
  6. DULOXETINE. [Concomitant]
     Active Substance: DULOXETINE
  7. LEVOTHYROXINE. [Concomitant]
     Active Substance: LEVOTHYROXINE
  8. TIZANIDINE. [Concomitant]
     Active Substance: TIZANIDINE
  9. ALBUTEROL. [Concomitant]
     Active Substance: ALBUTEROL
  10. AVELOX [Suspect]
     Active Substance: MOXIFLOXACIN HYDROCHLORIDE
     Dosage: UNK
     Dates: start: 201308
  11. SYMBICORT [Concomitant]
     Active Substance: BUDESONIDE\FORMOTEROL FUMARATE DIHYDRATE
  12. ZITHROMAX [Concomitant]
     Active Substance: AZITHROMYCIN DIHYDRATE

REACTIONS (18)
  - Hypoaesthesia [None]
  - Back pain [None]
  - Chronic obstructive pulmonary disease [None]
  - Diarrhoea [None]
  - Neuropathy peripheral [None]
  - Pain [None]
  - Quality of life decreased [None]
  - Anxiety [None]
  - Injury [None]
  - Burning sensation [None]
  - Bronchitis [None]
  - Muscle twitching [None]
  - Bone pain [None]
  - Fear [None]
  - Vomiting [None]
  - Muscle spasms [None]
  - Emotional distress [None]
  - Abdominal pain [None]
